FAERS Safety Report 16181120 (Version 2)
Quarter: 2023Q2

REPORT INFORMATION
  Report Type: Spontaneous
  Country: US (occurrence: None)
  Receive Date: 20190410
  Receipt Date: 20230421
  Transmission Date: 20230722
  Serious: Yes (Death, Other)
  Sender: FDA-Public Use
  Company Number: 2018SF14475

PATIENT
  Sex: Female

DRUGS (23)
  1. NEXIUM [Suspect]
     Active Substance: ESOMEPRAZOLE MAGNESIUM
     Route: 048
  2. PRILOSEC [Suspect]
     Active Substance: OMEPRAZOLE MAGNESIUM
     Route: 048
  3. ACETAMINOPHEN [Concomitant]
     Active Substance: ACETAMINOPHEN
  4. ALBUTEROL [Concomitant]
     Active Substance: ALBUTEROL
  5. OLANZAPINE [Concomitant]
     Active Substance: OLANZAPINE
  6. TRAZODONE [Concomitant]
     Active Substance: TRAZODONE HYDROCHLORIDE
  7. ASPIRIN [Concomitant]
     Active Substance: ASPIRIN
  8. CHOLESTYRAMINE [Concomitant]
     Active Substance: CHOLESTYRAMINE
  9. FLUTICASONE [Concomitant]
     Active Substance: FLUTICASONE
  10. FUROSEMIDE [Concomitant]
     Active Substance: FUROSEMIDE
  11. LEVOFLOXACIN [Concomitant]
     Active Substance: LEVOFLOXACIN
  12. LORAZEPAM [Concomitant]
     Active Substance: LORAZEPAM
  13. MELATONIN [Concomitant]
     Active Substance: MELATONIN
  14. RIVASTIGMINE [Concomitant]
     Active Substance: RIVASTIGMINE
  15. CELEBREX [Concomitant]
     Active Substance: CELECOXIB
  16. AMLODIPINE BESYLATE [Concomitant]
     Active Substance: AMLODIPINE BESYLATE
  17. ACETAMINOPHEN\HYDROCODONE [Concomitant]
     Active Substance: ACETAMINOPHEN\HYDROCODONE
  18. SINGULAIR [Concomitant]
     Active Substance: MONTELUKAST SODIUM
  19. JANTOVEN [Concomitant]
     Active Substance: WARFARIN SODIUM
  20. METOPROLOL TARTRATE [Concomitant]
     Active Substance: METOPROLOL TARTRATE
  21. PROPYLTHIOURACIL [Concomitant]
     Active Substance: PROPYLTHIOURACIL
  22. ACCUNEB [Concomitant]
     Active Substance: ALBUTEROL SULFATE
  23. TYLENOL [Concomitant]
     Active Substance: ACETAMINOPHEN

REACTIONS (4)
  - Acute kidney injury [Fatal]
  - Cardiac failure congestive [Fatal]
  - Chronic kidney disease [Unknown]
  - End stage renal disease [Unknown]
